FAERS Safety Report 10482008 (Version 3)
Quarter: 2015Q4

REPORT INFORMATION
  Report Type: Report from Study
  Country: US (occurrence: US)
  Receive Date: 20140929
  Receipt Date: 20151211
  Transmission Date: 20160304
  Serious: Yes (Other)
  Sender: FDA-Public Use
  Company Number: US-SA-2014SA130147

PATIENT
  Age: 26 Year
  Sex: Male
  Weight: 55 kg

DRUGS (24)
  1. FABRAZYME [Suspect]
     Active Substance: AGALSIDASE BETA
     Indication: FABRY^S DISEASE
     Dosage: 175 MG/KG: 21-MAY-2010
     Route: 041
     Dates: start: 200910
  2. FABRAZYME [Suspect]
     Active Substance: AGALSIDASE BETA
     Indication: LIPIDOSIS
     Route: 041
     Dates: start: 201302
  3. NEURONTIN [Concomitant]
     Active Substance: GABAPENTIN
     Indication: NEUROPATHY PERIPHERAL
     Route: 048
  4. FABRAZYME [Suspect]
     Active Substance: AGALSIDASE BETA
     Indication: LIPIDOSIS
     Route: 041
     Dates: start: 2003
  5. FENTANYL. [Concomitant]
     Active Substance: FENTANYL
     Indication: PAIN
     Dosage: FENTANYL PATCH 50 MCG/HR 1 PATCH TRANSDERMAL CHANGE EVERY 72 HRS
     Route: 062
  6. IBUPROFEN. [Concomitant]
     Active Substance: IBUPROFEN
     Indication: PREMEDICATION
     Dosage: AN HOUR BEFORE THE INFUSION
  7. FABRAZYME [Suspect]
     Active Substance: AGALSIDASE BETA
     Indication: FABRY^S DISEASE
     Route: 041
     Dates: start: 2003
  8. CYMBALTA [Concomitant]
     Active Substance: DULOXETINE HYDROCHLORIDE
     Indication: PAIN
     Route: 048
  9. DULCOLAX NOS [Concomitant]
     Active Substance: BISACODYL OR DOCUSATE SODIUM
     Indication: CONSTIPATION
     Dosage: 3-4 TIMES WEEKLY
     Route: 048
  10. PRILOSEC [Concomitant]
     Active Substance: OMEPRAZOLE MAGNESIUM
     Indication: DYSPEPSIA
     Route: 048
  11. FABRAZYME [Suspect]
     Active Substance: AGALSIDASE BETA
     Indication: LIPIDOSIS
     Dosage: 175 MG/KG: 21-MAY-2010
     Route: 041
     Dates: start: 200910
  12. MOTRIN [Concomitant]
     Active Substance: IBUPROFEN
  13. DURAGESIC [Concomitant]
     Active Substance: FENTANYL
     Dosage: EVERY 72 HOURS 1 PATCH APPLIED TOPICALLY
     Route: 061
  14. COLACE [Concomitant]
     Active Substance: DOCUSATE SODIUM
     Route: 048
  15. ACETAMINOPHEN. [Concomitant]
     Active Substance: ACETAMINOPHEN
     Route: 048
  16. TYLENOL [Concomitant]
     Active Substance: ACETAMINOPHEN
     Dosage: PRNPAIN ONCE INFUSION STARTED
     Route: 048
  17. BENADRYL [Concomitant]
     Active Substance: DIPHENHYDRAMINE HYDROCHLORIDE
     Dosage: 25-50 MG FOR MODERATE REACTION
     Route: 042
  18. ZANTAC [Concomitant]
     Active Substance: RANITIDINE HYDROCHLORIDE
     Route: 048
  19. PERCOCET [Concomitant]
     Active Substance: ACETAMINOPHEN\OXYCODONE HYDROCHLORIDE
     Dosage: 10 MG/325 MG Q4H PRN FOR PAIN
     Route: 048
  20. EPIPEN [Concomitant]
     Active Substance: EPINEPHRINE
     Dosage: 0.3 MG/0.3 ML SUBQ PRN SEVERE REACTION
  21. LIDOCAINE/PRILOCAINE [Concomitant]
     Indication: PREMEDICATION
     Dosage: 30 MINUTES PRIOR TO THE INFUSION. APPLIED TOPICALLY TO INSERTION SITE AS NEEDED.
     Route: 061
  22. DIPHENHYDRAMINE. [Concomitant]
     Active Substance: DIPHENHYDRAMINE
     Dosage: 25 TO 50 MG WITHOUT REFILL
  23. FABRAZYME [Suspect]
     Active Substance: AGALSIDASE BETA
     Indication: FABRY^S DISEASE
     Route: 041
     Dates: start: 201302
  24. NAPROXEN. [Concomitant]
     Active Substance: NAPROXEN
     Route: 048

REACTIONS (49)
  - Haemorrhage [Unknown]
  - Nerve injury [Unknown]
  - Pain [Recovering/Resolving]
  - Haematuria [Unknown]
  - Activities of daily living impaired [Unknown]
  - Ill-defined disorder [Unknown]
  - Palpitations [Unknown]
  - Paraesthesia [Not Recovered/Not Resolved]
  - Myocardial infarction [Unknown]
  - Fall [Unknown]
  - Proteinuria [Unknown]
  - Ear discomfort [Unknown]
  - Neutrophil count decreased [Unknown]
  - Chest pain [Unknown]
  - Face injury [Unknown]
  - Tinnitus [Unknown]
  - Depression [Unknown]
  - Angiokeratoma [Unknown]
  - Anxiety [Unknown]
  - Burning sensation [Unknown]
  - Rash [Unknown]
  - Headache [Unknown]
  - Contusion [Unknown]
  - Laboratory test abnormal [Unknown]
  - Chills [Unknown]
  - Tooth injury [Unknown]
  - Obsessive-compulsive disorder [Unknown]
  - Small fibre neuropathy [Unknown]
  - Neuralgia [Unknown]
  - Urine analysis abnormal [Unknown]
  - Deafness transitory [Unknown]
  - Ocular hyperaemia [Unknown]
  - Temperature intolerance [Unknown]
  - Back pain [Unknown]
  - Lymphocyte count increased [Unknown]
  - Protein urine [Unknown]
  - Albumin urine present [Unknown]
  - Localised oedema [Unknown]
  - Dizziness [Unknown]
  - Cerebrovascular accident [Unknown]
  - Lordosis [Unknown]
  - Blood creatinine decreased [Unknown]
  - Crystal urine present [Unknown]
  - Pyrexia [Unknown]
  - Hypoaesthesia oral [Not Recovered/Not Resolved]
  - Hypoaesthesia [Unknown]
  - Pharyngitis streptococcal [Unknown]
  - Odynophagia [Unknown]
  - Fatigue [Unknown]

NARRATIVE: CASE EVENT DATE: 2003
